FAERS Safety Report 21996288 (Version 2)
Quarter: 2023Q2

REPORT INFORMATION
  Report Type: Spontaneous
  Country: US (occurrence: US)
  Receive Date: 20230215
  Receipt Date: 20230414
  Transmission Date: 20230721
  Serious: No
  Sender: FDA-Public Use
  Company Number: US-LUNDBECK-DKLU3058196

PATIENT
  Age: 49 Year
  Sex: Female
  Weight: 79.378 kg

DRUGS (1)
  1. VYEPTI [Suspect]
     Active Substance: EPTINEZUMAB-JJMR
     Indication: Migraine
     Route: 041
     Dates: start: 20230111

REACTIONS (2)
  - Dizziness [Not Recovered/Not Resolved]
  - Abdominal pain upper [Unknown]
